FAERS Safety Report 12390946 (Version 2)
Quarter: 2016Q2

REPORT INFORMATION
  Report Type: Report from Study
  Country: DZ (occurrence: DZ)
  Receive Date: 20160520
  Receipt Date: 20160602
  Transmission Date: 20160815
  Serious: Yes (Other)
  Sender: FDA-Public Use
  Company Number: DZ-KADMON PHARMACEUTICALS, LLC-KAD201605-001865

PATIENT
  Age: 26 Year
  Sex: Female
  Weight: 56 kg

DRUGS (7)
  1. ACETAMINOPHEN/PARACETAMOL (PANADOL) [Concomitant]
     Indication: HEADACHE
     Route: 048
     Dates: start: 20160503, end: 20160503
  2. ABT-450/RITONAVIR/ABT-267 [Suspect]
     Active Substance: OMBITASVIR\PARITAPREVIR\RITONAVIR
     Indication: CHRONIC HEPATITIS C
     Dosage: TABLET
     Route: 048
     Dates: start: 20160425
  3. DESOGESTREL [Concomitant]
     Active Substance: DESOGESTREL
     Indication: ORAL CONTRACEPTION
     Route: 048
     Dates: start: 201508, end: 20160424
  4. ORGAMETRIL [Concomitant]
     Active Substance: LYNESTRENOL
     Indication: CONTRACEPTION
     Dates: start: 20160512
  5. RIBAVIRIN 200 MG TABLETS [Suspect]
     Active Substance: RIBAVIRIN
     Indication: CHRONIC HEPATITIS C
     Dosage: DIVIDED DOSES DAILY (TOTAL DAILY DOSE 1000 MG)
     Route: 048
     Dates: start: 20160425, end: 20160505
  6. ABT-333, 250 MG TABLET [Suspect]
     Active Substance: DASABUVIR
     Indication: CHRONIC HEPATITIS C
     Route: 048
     Dates: start: 20160425
  7. FOLIC ACID. [Concomitant]
     Active Substance: FOLIC ACID
     Indication: PREGNANCY
     Route: 048
     Dates: start: 20160507

REACTIONS (1)
  - Abortion spontaneous [Recovered/Resolved]

NARRATIVE: CASE EVENT DATE: 20160510
